FAERS Safety Report 20103137 (Version 2)
Quarter: 2021Q4

REPORT INFORMATION
  Report Type: Spontaneous
  Country: IR (occurrence: IR)
  Receive Date: 20211123
  Receipt Date: 20211208
  Transmission Date: 20220303
  Serious: Yes (Death, Life-Threatening, Hospitalization, Other)
  Sender: FDA-Public Use
  Company Number: IR-MLMSERVICE-20211104-3208191-1

PATIENT
  Age: 74 Year
  Sex: Female

DRUGS (7)
  1. METHYLPREDNISOLONE ACETATE [Suspect]
     Active Substance: METHYLPREDNISOLONE ACETATE
     Indication: COVID-19
     Dosage: 130 MG
     Dates: start: 202008
  2. INSULIN NOS [Concomitant]
     Active Substance: INSULIN NOS
     Indication: Diabetes mellitus
     Dosage: UNK
     Dates: start: 202008
  3. PIPERACILLIN SODIUM\TAZOBACTAM SODIUM [Concomitant]
     Active Substance: PIPERACILLIN SODIUM\TAZOBACTAM SODIUM
     Dosage: 4.5 G, 3X/DAY (Q8H)
     Dates: start: 202008
  4. OXYGEN [Concomitant]
     Active Substance: OXYGEN
     Indication: COVID-19
     Dosage: 4 L PER 1 MINUTE
     Route: 045
     Dates: start: 202008
  5. AMBISOME [Concomitant]
     Active Substance: AMPHOTERICIN B
     Indication: Fungal infection
     Dosage: 5 MG/KG, 1X/DAY
     Dates: start: 20200810
  6. TARGOCID [Concomitant]
     Active Substance: TEICOPLANIN
     Dosage: 6 MG/KG, 2X/DAY (Q12H)
     Dates: start: 202008
  7. INTERFERON BETA-1B [Concomitant]
     Active Substance: INTERFERON BETA-1B
     Indication: COVID-19
     Dosage: 0.25 MG, 1X/DAY
     Route: 058
     Dates: start: 202008

REACTIONS (2)
  - Fungal infection [Fatal]
  - Off label use [Unknown]

NARRATIVE: CASE EVENT DATE: 20200801
